FAERS Safety Report 9537947 (Version 1)
Quarter: 2013Q3

REPORT INFORMATION
  Report Type: Spontaneous
  Country: DE (occurrence: DE)
  Receive Date: 20130919
  Receipt Date: 20130919
  Transmission Date: 20140515
  Serious: Yes (Other)
  Sender: FDA-Public Use
  Company Number: DE-ROCHE-1278302

PATIENT
  Sex: Male

DRUGS (3)
  1. LUCENTIS [Suspect]
     Indication: PRODUCT USED FOR UNKNOWN INDICATION
     Route: 050
  2. LUCENTIS [Suspect]
     Dosage: IN LEFT EYE
     Route: 050
     Dates: start: 201111
  3. LUCENTIS [Suspect]
     Dosage: IN RIGHT EYE
     Route: 050
     Dates: start: 201202

REACTIONS (2)
  - Cerebrovascular accident [Unknown]
  - Myocardial infarction [Unknown]
